FAERS Safety Report 8924056 (Version 2)
Quarter: 2013Q1

REPORT INFORMATION
  Report Type: Spontaneous
  Country: FR (occurrence: FR)
  Receive Date: 20121126
  Receipt Date: 20130220
  Transmission Date: 20140127
  Serious: Yes (Other)
  Sender: FDA-Public Use
  Company Number: FR-ROCHE-1160085

PATIENT
  Age: 77 Year
  Sex: Male

DRUGS (2)
  1. LUCENTIS [Suspect]
     Indication: RETINAL VEIN THROMBOSIS
     Route: 050
     Dates: start: 20121024
  2. LUCENTIS [Suspect]
     Route: 050
     Dates: start: 20120911

REACTIONS (2)
  - Myocardial infarction [Recovering/Resolving]
  - Troponin increased [Unknown]
